FAERS Safety Report 8938849 (Version 2)
Quarter: 2012Q4

REPORT INFORMATION
  Report Type: 
  Country: SE (occurrence: SE)
  Receive Date: 20121203
  Receipt Date: 20121214
  Transmission Date: 20130627
  Serious: Yes (Hospitalization)
  Sender: FDA-Public Use
  Company Number: SE-JNJFOC-20121109528

PATIENT
  Age: 50 Year
  Sex: Female

DRUGS (4)
  1. STELARA [Suspect]
     Indication: PSORIATIC ARTHROPATHY
     Route: 058
     Dates: start: 20110518
  2. HUMIRA [Concomitant]
     Route: 065
  3. METHOTREXATE [Concomitant]
     Route: 065
  4. PREDNISOLON [Concomitant]
     Route: 065

REACTIONS (2)
  - Cholecystitis acute [Recovered/Resolved with Sequelae]
  - Off label use [Not Recovered/Not Resolved]
